FAERS Safety Report 6257189-1 (Version None)
Quarter: 2009Q4

REPORT INFORMATION
  Report Type: 
  Country: None (occurrence: None)
  Receive Date: 20090706
  Receipt Date: 20090706
  Transmission Date: 20100525
  Serious: Yes (Life-Threatening, Hospitalization)
  Sender: FDA-Public Use
  Company Number: None

PATIENT
  Age: 24 Year
  Sex: Female
  Weight: 58.9676 kg

DRUGS (2)
  1. MIFEPRISTONE DANCO LABS [Suspect]
     Indication: ABORTION INDUCED
     Dosage: 600 MG ONE TIME INTRA-UTERINE ONE TIME DOSE
     Route: 015
     Dates: start: 20040701, end: 20040701
  2. MIFEPRISTONE [Concomitant]

REACTIONS (6)
  - AMENORRHOEA [None]
  - DRUG EXPOSURE DURING PREGNANCY [None]
  - MENORRHAGIA [None]
  - RETAINED PLACENTA OR MEMBRANES [None]
  - SCAR [None]
  - SYNCOPE [None]
